FAERS Safety Report 14436048 (Version 1)
Quarter: 2018Q1

REPORT INFORMATION
  Report Type: Spontaneous
  Country: US (occurrence: US)
  Receive Date: 20180124
  Receipt Date: 20180124
  Transmission Date: 20180509
  Serious: No
  Sender: FDA-Public Use
  Company Number: None

PATIENT
  Age: 62 Year
  Weight: 67.5 kg

DRUGS (6)
  1. MULTI VITAMIN [Concomitant]
     Active Substance: VITAMINS
  2. CALCIUM [Concomitant]
     Active Substance: CALCIUM
  3. NEOMYCIN AND POLYMYXIN B SULFATES AND DEXAMETHASONE OPHTHALMIC SUSPENS [Suspect]
     Active Substance: DEXAMETHASONE\NEOMYCIN\POLYMYXIN B SULFATE
     Indication: CONJUNCTIVITIS
     Dosage: ?          QUANTITY:1 DROP(S);?
     Route: 047
     Dates: start: 20180122, end: 20180123
  4. FISH OIL [Concomitant]
     Active Substance: FISH OIL
  5. AMLODIPINE [Concomitant]
     Active Substance: AMLODIPINE BESYLATE
  6. LEVOTHYROXINE. [Concomitant]
     Active Substance: LEVOTHYROXINE

REACTIONS (7)
  - Eye oedema [None]
  - Eye pruritus [None]
  - Middle insomnia [None]
  - Eye pain [None]
  - Eye swelling [None]
  - Ocular hyperaemia [None]
  - Eyelid oedema [None]

NARRATIVE: CASE EVENT DATE: 20180123
